FAERS Safety Report 6282164-0 (Version None)
Quarter: 2009Q3

REPORT INFORMATION
  Report Type: 
  Country: None (occurrence: None)
  Receive Date: 20090724
  Receipt Date: 20090716
  Transmission Date: 20100115
  Serious: Yes (Other)
  Sender: FDA-Public Use
  Company Number: US-JNJFOC-20090707048

PATIENT
  Sex: Female

DRUGS (6)
  1. SIMPONI [Suspect]
     Indication: RHEUMATOID ARTHRITIS
     Route: 058
  2. PREDNISONE TAB [Concomitant]
  3. CELEBREX [Concomitant]
  4. HORMONES [Concomitant]
  5. ZYVOX [Concomitant]
  6. PAIN MEDICATION [Concomitant]
     Indication: PAIN

REACTIONS (1)
  - STAPHYLOCOCCAL INFECTION [None]
